FAERS Safety Report 4865170-X (Version None)
Quarter: 2005Q4

REPORT INFORMATION
  Report Type: 
  Country: None (occurrence: None)
  Receive Date: 20051221
  Receipt Date: 20051221
  Transmission Date: 20060501
  Serious: Yes (Hospitalization)
  Sender: FDA-Public Use
  Company Number: None

PATIENT
  Age: 51 Year
  Sex: Female

DRUGS (1)
  1. OXALIPLATIN [Suspect]
     Indication: COLON CANCER
     Dosage: IV
     Route: 042

REACTIONS (7)
  - BLINDNESS UNILATERAL [None]
  - CHROMATOPSIA [None]
  - EYE PAIN [None]
  - HEADACHE [None]
  - LEUKOENCEPHALOMYELITIS [None]
  - OPTIC NEURITIS RETROBULBAR [None]
  - VIRAL INFECTION [None]
